FAERS Safety Report 11435945 (Version 1)
Quarter: 2015Q3

REPORT INFORMATION
  Report Type: Spontaneous
  Country: US (occurrence: US)
  Receive Date: 20150831
  Receipt Date: 20150831
  Transmission Date: 20151125
  Serious: Yes (Hospitalization, Other)
  Sender: FDA-Public Use
  Company Number: US-GLAXOSMITHKLINE-US2015123990

PATIENT
  Age: 72 Year
  Sex: Male

DRUGS (1)
  1. FLOVENT [Suspect]
     Active Substance: FLUTICASONE PROPIONATE
     Indication: ASTHMA
     Dosage: 1 PUFF(S), BID
     Dates: start: 2008

REACTIONS (8)
  - Tracheal stenosis [Recovering/Resolving]
  - Visual field defect [Recovering/Resolving]
  - Cerebrovascular accident [Recovering/Resolving]
  - Seizure [Recovering/Resolving]
  - Endotracheal intubation [Unknown]
  - Ageusia [Not Recovered/Not Resolved]
  - Cardiac operation [Recovering/Resolving]
  - Swollen tongue [Recovering/Resolving]

NARRATIVE: CASE EVENT DATE: 201212
